FAERS Safety Report 5941086-2 (Version None)
Quarter: 2008Q4

REPORT INFORMATION
  Report Type: 
  Country: None (occurrence: None)
  Receive Date: 20081104
  Receipt Date: 20081030
  Transmission Date: 20090506
  Serious: Yes (Death, Other)
  Sender: FDA-Public Use
  Company Number: US-ROXANE LABORATORIES, INC.-2007-BP-00717RO

PATIENT
  Sex: Male
  Weight: 98 kg

DRUGS (10)
  1. METHADONE HCL [Suspect]
     Indication: DRUG DEPENDENCE
     Dosage: 30MG
     Dates: start: 20050105, end: 20050105
  2. METHADONE HCL [Suspect]
     Dosage: 40MG
     Dates: start: 20050106, end: 20050106
  3. METHADONE HCL [Suspect]
     Dosage: 30MG
     Dates: start: 20050107, end: 20050107
  4. METHADONE HCL [Suspect]
     Dosage: 40MG
     Dates: start: 20050108, end: 20050108
  5. METHADONE HCL [Suspect]
     Dosage: 45MG
     Dates: start: 20050110, end: 20050110
  6. METHADONE HCL [Suspect]
     Dosage: 50MG
     Dates: start: 20050111, end: 20050111
  7. METHADONE HCL [Suspect]
     Dosage: 60MG
     Dates: start: 20050112, end: 20050112
  8. HYDROCODONE BITARTRATE [Suspect]
     Indication: PROCEDURAL PAIN
  9. HYDROCODONE BITARTRATE [Suspect]
     Route: 048
  10. ZOLOFT [Suspect]
     Indication: DEPRESSION
     Dosage: 100MG

REACTIONS (7)
  - DRUG SCREEN POSITIVE [None]
  - DRUG TOXICITY [None]
  - HEADACHE [None]
  - HEPATIC STEATOSIS [None]
  - INCOHERENT [None]
  - SOMNOLENCE [None]
  - VOMITING [None]
